FAERS Safety Report 9875514 (Version 1)
Quarter: 2014Q1

REPORT INFORMATION
  Report Type: Spontaneous
  Country: US (occurrence: None)
  Receive Date: 20140205
  Receipt Date: 20140205
  Transmission Date: 20141002
  Serious: No
  Sender: FDA-Public Use
  Company Number: None

PATIENT
  Age: 64 Year
  Sex: Female

DRUGS (1)
  1. AFINITOR [Suspect]
     Indication: BREAST CANCER
     Route: 048
     Dates: start: 20131209, end: 20140203

REACTIONS (5)
  - Tumour marker increased [None]
  - Chest pain [None]
  - Dyspnoea [None]
  - Lung disorder [None]
  - Bone lesion [None]
